FAERS Safety Report 6178838-2 (Version None)
Quarter: 2009Q2

REPORT INFORMATION
  Report Type: 
  Country: None (occurrence: None)
  Receive Date: 20090504
  Receipt Date: 20090325
  Transmission Date: 20091009
  Serious: No
  Sender: FDA-Public Use
  Company Number: US-ALEXION-A200900247

PATIENT
  Sex: Male

DRUGS (6)
  1. SOLIRIS [Suspect]
     Indication: PAROXYSMAL NOCTURNAL HAEMOGLOBINURIA
     Dosage: 600 MG, WEEKLY
     Dates: start: 20070503, end: 20070524
  2. SOLIRIS [Suspect]
     Dosage: 900 MQ, Q 2 WEEKS
     Dates: start: 20070531
  3. ZOLOFT [Concomitant]
     Indication: DEPRESSION
     Dosage: UNK
     Route: 048
  4. XANAX [Concomitant]
     Indication: DEPRESSION
     Dosage: UNK
     Route: 048
  5. DILAUDID [Concomitant]
     Indication: BACK PAIN
     Dosage: UNK
     Route: 048
  6. PREDNISONE [Concomitant]
     Indication: PAROXYSMAL NOCTURNAL HAEMOGLOBINURIA
     Dosage: UNK
     Route: 048

REACTIONS (5)
  - CHILLS [None]
  - DIARRHOEA [None]
  - HYPERHIDROSIS [None]
  - PYREXIA [None]
  - VOMITING [None]
